FAERS Safety Report 10178958 (Version 1)
Quarter: 2014Q2

REPORT INFORMATION
  Report Type: Spontaneous
  Country: US (occurrence: US)
  Receive Date: 20140519
  Receipt Date: 20140519
  Transmission Date: 20141212
  Serious: No
  Sender: FDA-Public Use
  Company Number: US-BIOGENIDEC-2014BI041116

PATIENT
  Age: 73 Year
  Sex: Female

DRUGS (13)
  1. TECFIDERA [Suspect]
     Indication: MULTIPLE SCLEROSIS
     Route: 048
     Dates: start: 20130627
  2. AMBIEN [Concomitant]
  3. ARICEPT [Concomitant]
  4. BETAGAN [Concomitant]
  5. CARDIZEM [Concomitant]
  6. CLONAZEPAM [Concomitant]
  7. COZAAR [Concomitant]
  8. GABAPENTIN [Concomitant]
  9. MAGNESIUM ASPARTATE [Concomitant]
  10. METFORMIN HCL [Concomitant]
  11. SAVELLA [Concomitant]
  12. SEROQUEL [Concomitant]
  13. ZOCOR [Concomitant]

REACTIONS (1)
  - Insomnia [Unknown]
